FAERS Safety Report 10483746 (Version 1)
Quarter: 2014Q3

REPORT INFORMATION
  Report Type: Spontaneous
  Country: US (occurrence: None)
  Receive Date: 20140929
  Receipt Date: 20140929
  Transmission Date: 20150326
  Serious: Yes (Life-Threatening, Hospitalization)
  Sender: FDA-Public Use
  Company Number: None

PATIENT
  Age: 12 Year
  Sex: Male
  Weight: 34.93 kg

DRUGS (1)
  1. STRATTERA [Suspect]
     Active Substance: ATOMOXETINE HYDROCHLORIDE
     Indication: ATTENTION DEFICIT/HYPERACTIVITY DISORDER
     Dosage: 10 MG, 2 DOSES OVER TWO DAYS ONCE DAILY TAKEN BY MOUTH
     Route: 048
     Dates: start: 20140924, end: 20140925

REACTIONS (2)
  - Hypersensitivity [None]
  - Cyanosis [None]

NARRATIVE: CASE EVENT DATE: 20140924
